FAERS Safety Report 5156719-0 (Version None)
Quarter: 2006Q4

REPORT INFORMATION
  Report Type: 
  Country: None (occurrence: None)
  Receive Date: 20061115
  Receipt Date: 20061107
  Transmission Date: 20070319
  Serious: Yes (Hospitalization)
  Sender: FDA-Public Use
  Company Number: 2006-02910

PATIENT
  Age: 54 Year
  Sex: Male
  Weight: 99.8 kg

DRUGS (9)
  1. VELCADE [Suspect]
     Indication: MULTIPLE MYELOMA
     Dosage: 1.50 MG, INTRAVENOUS
     Route: 042
     Dates: start: 20060711
  2. CYCLOPHOSPHAMIDE [Suspect]
     Indication: MULTIPLE MYELOMA
     Dosage: 610.00 MG, ORAL
     Route: 048
     Dates: start: 20060711
  3. PREDNISONE [Suspect]
     Indication: MULTIPLE MYELOMA
     Dosage: 100.00 MG, ORAL
     Route: 048
     Dates: start: 20060711
  4. AREDIA [Concomitant]
  5. HYDROMORPH CONTIN                (HYDROMORPHONE HYDROCHLORIDE) [Concomitant]
  6. DILANID (ISOSORBIDE DINITRATE) [Concomitant]
  7. ........................... [Concomitant]
  8. TEGRETOL [Concomitant]
  9. CYTOXAN [Concomitant]

REACTIONS (2)
  - HERPES ZOSTER DISSEMINATED [None]
  - HERPES ZOSTER OPHTHALMIC [None]
